FAERS Safety Report 7249668-5 (Version None)
Quarter: 2011Q1

REPORT INFORMATION
  Report Type: 
  Country: None (occurrence: None)
  Receive Date: 20110128
  Receipt Date: 20110118
  Transmission Date: 20110831
  Serious: Yes (Hospitalization)
  Sender: FDA-Public Use
  Company Number: CH-JNJFOC-20110105226

PATIENT
  Age: 32 Year
  Sex: Female

DRUGS (6)
  1. NEUPOGEN [Suspect]
     Indication: SYNOVIAL SARCOMA
     Route: 041
  2. METHYLPREDNISOLONE SODIUM SUCCINATE [Suspect]
     Indication: SYNOVIAL SARCOMA
     Route: 042
  3. ONDANSETRON HYDROCHLORIDE [Suspect]
     Indication: SYNOVIAL SARCOMA
     Route: 048
  4. DOXORUBICIN HYDROCHLORIDE [Suspect]
     Indication: SYNOVIAL SARCOMA
     Route: 041
  5. IFOSFAMIDE [Suspect]
     Indication: SYNOVIAL SARCOMA
     Route: 041
  6. MESNA [Suspect]
     Indication: SYNOVIAL SARCOMA
     Route: 041

REACTIONS (1)
  - CAESAREAN SECTION [None]
